FAERS Safety Report 5860624-1 (Version None)
Quarter: 2008Q3

REPORT INFORMATION
  Report Type: 
  Country: None (occurrence: None)
  Receive Date: 20080827
  Receipt Date: 20071105
  Transmission Date: 20090109
  Serious: No
  Sender: FDA-Public Use
  Company Number: US-ABBOTT-07P-163-0423442-00

PATIENT
  Sex: Male
  Weight: 90.8 kg

DRUGS (10)
  1. NIASPAN [Suspect]
     Indication: BLOOD TRIGLYCERIDES
     Route: 048
     Dates: start: 20071003, end: 20071010
  2. NIASPAN [Suspect]
     Route: 048
     Dates: start: 20070926, end: 20071002
  3. NIASPAN [Suspect]
     Route: 048
     Dates: start: 20070919, end: 20070925
  4. OMEPRAZOLE [Concomitant]
     Indication: DRUG USE FOR UNKNOWN INDICATION
  5. URSODIOL [Concomitant]
     Indication: LIVER DISORDER
  6. METFORMIN HCL [Concomitant]
     Indication: DRUG USE FOR UNKNOWN INDICATION
  7. CLONIDINE [Concomitant]
     Indication: BLOOD PRESSURE
  8. LISINOPRIL [Concomitant]
     Indication: BLOOD PRESSURE
  9. PRAVASTATIN [Concomitant]
     Indication: BLOOD CHOLESTEROL
  10. ACETYLSALICYLIC ACID SRT [Concomitant]
     Indication: PROPHYLAXIS

REACTIONS (6)
  - BACK PAIN [None]
  - BLISTER [None]
  - ERYTHEMA [None]
  - FLUSHING [None]
  - PRURITUS [None]
  - SCAB [None]
